FAERS Safety Report 10821253 (Version 3)
Quarter: 2015Q3

REPORT INFORMATION
  Report Type: Report from Study
  Country: US (occurrence: US)
  Receive Date: 20150218
  Receipt Date: 20150819
  Transmission Date: 20151125
  Serious: Yes (Hospitalization)
  Sender: FDA-Public Use
  Company Number: US-GILEAD-2015-0137606

PATIENT
  Age: 71 Year
  Sex: Female

DRUGS (2)
  1. AMBRISENTAN [Suspect]
     Active Substance: AMBRISENTAN
     Indication: PRODUCT USED FOR UNKNOWN INDICATION
     Dosage: 5 MG, QD
     Route: 065
     Dates: start: 20150128
  2. ADCIRCA [Concomitant]
     Active Substance: TADALAFIL
     Dosage: UNK

REACTIONS (4)
  - Oedema [Unknown]
  - Peripheral swelling [Unknown]
  - Fluid retention [Unknown]
  - Swelling [Unknown]
